FAERS Safety Report 4269114-3 (Version None)
Quarter: 2004Q1

REPORT INFORMATION
  Report Type: 
  Country: None (occurrence: None)
  Receive Date: 20040108
  Receipt Date: 20031218
  Transmission Date: 20041129
  Serious: Yes (Death)
  Sender: FDA-Public Use
  Company Number: JP_031202258

PATIENT
  Age: 81 Year
  Sex: Male

DRUGS (2)
  1. GEMZAR [Suspect]
     Indication: PANCREATIC CARCINOMA
     Dosage: 250 MG/M2/OTHER
     Route: 050
  2. RADIATION THERAPY [Concomitant]

REACTIONS (2)
  - CHEST X-RAY ABNORMAL [None]
  - LYMPHANGIOSIS CARCINOMATOSA [None]
